FAERS Safety Report 9086011 (Version 1)
Quarter: 2013Q1

REPORT INFORMATION
  Report Type: Report from Study
  Country: US (occurrence: US)
  Receive Date: 20130131
  Receipt Date: 20130131
  Transmission Date: 20140127
  Serious: Yes (Hospitalization)
  Sender: FDA-Public Use
  Company Number: US-ABBOTT-12P-163-1010678-00

PATIENT
  Age: 65 None
  Sex: Female

DRUGS (18)
  1. HUMIRA PEN [Suspect]
     Indication: CROHN^S DISEASE
     Dates: start: 2011, end: 201201
  2. HUMIRA PEN [Suspect]
     Dates: start: 201201, end: 201211
  3. PREDNISONE [Suspect]
     Indication: PRODUCT USED FOR UNKNOWN INDICATION
  4. PREDNISONE [Suspect]
     Route: 048
  5. INFLUENZA VACCINE [Suspect]
     Indication: IMMUNISATION
  6. PREMARIN [Concomitant]
     Indication: HORMONE THERAPY
     Dosage: HORMONE - LOW DOSE
  7. PREMARIN [Concomitant]
     Indication: PRODUCT USED FOR UNKNOWN INDICATION
     Route: 061
  8. POTASSIUM [Concomitant]
     Indication: PRODUCT USED FOR UNKNOWN INDICATION
  9. MAGNESIUM [Concomitant]
     Indication: PRODUCT USED FOR UNKNOWN INDICATION
  10. VITAMIN D [Concomitant]
     Indication: PRODUCT USED FOR UNKNOWN INDICATION
  11. B-12 [Concomitant]
     Indication: PRODUCT USED FOR UNKNOWN INDICATION
     Route: 050
  12. NEXIUM [Concomitant]
     Indication: DYSPEPSIA
  13. PENTASA [Concomitant]
     Indication: CROHN^S DISEASE
  14. TRAZADONE [Concomitant]
     Indication: PAIN
     Dosage: PATIENT THINKS 100 MG
  15. SINGULAIR [Concomitant]
     Indication: PRODUCT USED FOR UNKNOWN INDICATION
  16. XOPENEX [Concomitant]
     Indication: PRODUCT USED FOR UNKNOWN INDICATION
     Dosage: INHALER FOR MACHINE USED AT HOME
  17. SPIRIVA [Concomitant]
     Indication: PRODUCT USED FOR UNKNOWN INDICATION
     Dosage: HAND HELD- ONCE A DAY
  18. PROAIR HFA [Concomitant]
     Indication: PRODUCT USED FOR UNKNOWN INDICATION

REACTIONS (12)
  - Crohn^s disease [Recovered/Resolved]
  - Weight increased [Unknown]
  - Dyspnoea [Unknown]
  - Bronchitis [Unknown]
  - Drug dose omission [Unknown]
  - Abasia [Unknown]
  - Pain [Unknown]
  - Arthralgia [Unknown]
  - Musculoskeletal stiffness [Unknown]
  - Herpes zoster [Not Recovered/Not Resolved]
  - Hair growth abnormal [Unknown]
  - Therapeutic response unexpected [Unknown]
